FAERS Safety Report 8108657-9 (Version None)
Quarter: 2012Q1

REPORT INFORMATION
  Report Type: 
  Country: None (occurrence: None)
  Receive Date: 20120202
  Receipt Date: 20120113
  Transmission Date: 20120608
  Serious: No
  Sender: FDA-Public Use
  Company Number: US-AMGEN-USASP2012002786

PATIENT
  Age: 57 Year
  Sex: Female

DRUGS (1)
  1. ENBREL [Suspect]
     Indication: PSORIATIC ARTHROPATHY
     Dosage: 50 MG, QWK
     Dates: start: 20110731, end: 20111228

REACTIONS (6)
  - PAIN IN EXTREMITY [None]
  - COUGH [None]
  - ARTHRALGIA [None]
  - NASAL CONGESTION [None]
  - DYSPNOEA [None]
  - FATIGUE [None]
